FAERS Safety Report 11553186 (Version 1)
Quarter: 2015Q3

REPORT INFORMATION
  Report Type: Spontaneous
  Country: US (occurrence: None)
  Receive Date: 20150924
  Receipt Date: 20150924
  Transmission Date: 20151125
  Serious: Yes (Hospitalization)
  Sender: FDA-Public Use
  Company Number: None

PATIENT
  Age: 83 Year
  Sex: Male
  Weight: 71.67 kg

DRUGS (4)
  1. CARBOPLATIN. [Concomitant]
     Active Substance: CARBOPLATIN
  2. TARCEVA [Suspect]
     Active Substance: ERLOTINIB HYDROCHLORIDE
     Indication: LUNG CARCINOMA CELL TYPE UNSPECIFIED STAGE 0
     Dosage: 150
     Route: 048
     Dates: start: 20150729
  3. AVASTIN [Concomitant]
     Active Substance: BEVACIZUMAB
  4. ALIMTA [Concomitant]
     Active Substance: PEMETREXED DISODIUM

REACTIONS (4)
  - Pyrexia [None]
  - White blood cell count increased [None]
  - Oral fungal infection [None]
  - Productive cough [None]
